FAERS Safety Report 8154500-1 (Version None)
Quarter: 2012Q1

REPORT INFORMATION
  Report Type: 
  Country: None (occurrence: None)
  Receive Date: 20120221
  Receipt Date: 20120210
  Transmission Date: 20120608
  Serious: Yes (Hospitalization)
  Sender: FDA-Public Use
  Company Number: FR-BRISTOL-MYERS SQUIBB COMPANY-16398349

PATIENT
  Age: 74 Year
  Sex: Female

DRUGS (4)
  1. VENTOLIN [Concomitant]
     Route: 055
  2. MEPRONIZINE [Concomitant]
     Route: 048
  3. IRBESARTAN [Suspect]
     Route: 048
     Dates: end: 20110928
  4. SPIRIVA [Concomitant]

REACTIONS (5)
  - EYE MOVEMENT DISORDER [None]
  - GENERAL PHYSICAL HEALTH DETERIORATION [None]
  - FOLATE DEFICIENCY [None]
  - PANCYTOPENIA [None]
  - FALL [None]
